FAERS Safety Report 6045768-6 (Version None)
Quarter: 2009Q1

REPORT INFORMATION
  Report Type: 
  Country: None (occurrence: None)
  Receive Date: 20090121
  Receipt Date: 20070328
  Transmission Date: 20090719
  Serious: Yes (Other)
  Sender: FDA-Public Use
  Company Number: US-PFIZER INC-2007025596

PATIENT
  Age: 19 Year
  Sex: Male

DRUGS (1)
  1. RELPAX [Suspect]
     Dates: start: 20061201

REACTIONS (3)
  - HEADACHE [None]
  - PAROSMIA [None]
  - THROMBOSIS [None]
